FAERS Safety Report 6694863-7 (Version None)
Quarter: 2010Q2

REPORT INFORMATION
  Report Type: 
  Country: None (occurrence: None)
  Receive Date: 20100420
  Receipt Date: 20100407
  Transmission Date: 20101027
  Serious: Yes (Death, Hospitalization)
  Sender: FDA-Public Use
  Company Number: 230448J10BRA

PATIENT
  Sex: Female

DRUGS (5)
  1. REBIF [Suspect]
     Indication: MULTIPLE SCLEROSIS
     Dosage: 22 MCG, 3 IN 1 WK; SUBCUTANEOUS
     Route: 058
     Dates: start: 20071001, end: 20100405
  2. VERTIX (FLUNARIZINE DIHYDROCHLORIDE) [Concomitant]
  3. SINVASTATIN (SIMVASTATIN) [Concomitant]
  4. OMEPRAZOLE [Concomitant]
  5. FERROUS SULFATE TAB [Concomitant]

REACTIONS (4)
  - CEREBROVASCULAR ACCIDENT [None]
  - DISEASE COMPLICATION [None]
  - MOVEMENT DISORDER [None]
  - PAIN IN EXTREMITY [None]
